FAERS Safety Report 4831359-9 (Version None)
Quarter: 2005Q4

REPORT INFORMATION
  Report Type: 
  Country: None (occurrence: None)
  Receive Date: 20051114
  Receipt Date: 20051108
  Transmission Date: 20060501
  Serious: Yes (Hospitalization)
  Sender: FDA-Public Use
  Company Number: CIP05002600

PATIENT
  Age: 54 Year
  Sex: Female
  Weight: 50 kg

DRUGS (4)
  1. ACTONEL [Suspect]
     Indication: OSTEOPOROSIS
     Dosage: 35 MG ONCE WEEKLY, ORAL
     Route: 048
     Dates: start: 20051031
  2. COZAAR PLUS (LOSARTAN POTASSIUM, HYDROCHLOROTHIAZIDE) [Concomitant]
  3. FEMOSTON (ESTRADIOL, DYDROGESTERONE) [Concomitant]
  4. OVESTIN (ESTRIOL) SUPPOSITORY [Concomitant]

REACTIONS (2)
  - MYALGIA [None]
  - PYREXIA [None]
